FAERS Safety Report 9201747 (Version 2)
Quarter: 2013Q2

REPORT INFORMATION
  Report Type: Spontaneous
  Country: US (occurrence: US)
  Receive Date: 20130401
  Receipt Date: 20130409
  Transmission Date: 20140414
  Serious: Yes (Other)
  Sender: FDA-Public Use
  Company Number: US-GILEAD-2013-0071892

PATIENT
  Sex: Female

DRUGS (6)
  1. LETAIRIS [Suspect]
     Indication: PULMONARY HYPERTENSION
     Dosage: 10 MG, QD
     Dates: start: 20080907
  2. ALBUTEROL SULFATE [Concomitant]
     Dosage: 2 DF, PRN
     Route: 055
  3. ASPIRIN [Concomitant]
     Dosage: 81 MG, QD
     Route: 048
  4. LOSARTAN POTASSIUM [Concomitant]
     Dosage: 25 MG, UNK
     Route: 048
  5. VENTOLIN HFA [Concomitant]
     Indication: DYSPNOEA
     Dosage: 2 DF, PRN
     Route: 055
  6. OXYGEN [Concomitant]

REACTIONS (14)
  - Hypoxia [Unknown]
  - Dyspnoea [Unknown]
  - Paraesthesia [Unknown]
  - Depression [Unknown]
  - Skin hyperpigmentation [Unknown]
  - Chest pain [Unknown]
  - Snoring [Unknown]
  - Sleep apnoea syndrome [Unknown]
  - Wheezing [Unknown]
  - Hypoaesthesia [Unknown]
  - Night sweats [Unknown]
  - Headache [Unknown]
  - Sinusitis [Unknown]
  - Oedema [Unknown]
